FAERS Safety Report 4579970-7 (Version None)
Quarter: 2005Q1

REPORT INFORMATION
  Report Type: 
  Country: None (occurrence: None)
  Receive Date: 20050210
  Receipt Date: 20050201
  Transmission Date: 20050727
  Serious: Yes (Hospitalization)
  Sender: FDA-Public Use
  Company Number: 2005-124887-NL

PATIENT
  Age: 24 Year
  Sex: Male

DRUGS (2)
  1. MIRTAZAPINE [Suspect]
     Route: 048
  2. PAROXETINE HYDROCHLORIDE [Concomitant]

REACTIONS (1)
  - PSYCHOTIC DISORDER [None]
